FAERS Safety Report 6162080-5 (Version None)
Quarter: 2009Q2

REPORT INFORMATION
  Report Type: 
  Country: None (occurrence: None)
  Receive Date: 20090421
  Receipt Date: 20090413
  Transmission Date: 20091009
  Serious: Yes (Death, Life-Threatening, Hospitalization, Other)
  Sender: FDA-Public Use
  Company Number: US-GENENTECH-279928

PATIENT
  Age: 72 Year
  Sex: Female

DRUGS (2)
  1. AVASTIN [Suspect]
     Indication: BREAST CANCER METASTATIC
     Dosage: 700 MG, UNK
     Route: 042
     Dates: start: 20090302, end: 20090302
  2. ABRAXANE [Concomitant]
     Indication: DRUG USE FOR UNKNOWN INDICATION
     Dosage: 200 MG, 1/WEEK
     Dates: start: 20090223

REACTIONS (4)
  - ABSCESS [None]
  - DIVERTICULAR PERFORATION [None]
  - ILEUS [None]
  - INTESTINAL OBSTRUCTION [None]
